FAERS Safety Report 13096267 (Version 2)
Quarter: 2017Q1

REPORT INFORMATION
  Report Type: Spontaneous
  Country: US (occurrence: US)
  Receive Date: 20170109
  Receipt Date: 20170331
  Transmission Date: 20170428
  Serious: Yes (Hospitalization)
  Sender: FDA-Public Use
  Company Number: US-JNJFOC-20150903198

PATIENT
  Age: 77 Year
  Sex: Male

DRUGS (6)
  1. IMBRUVICA [Suspect]
     Active Substance: IBRUTINIB
     Indication: CHRONIC LYMPHOCYTIC LEUKAEMIA
     Route: 048
     Dates: start: 20150612, end: 20170307
  2. AMOXICILLIN TRIHYDRATE AND POTASSIUM CLAVULAN [Concomitant]
  3. MULTIVITAMINS [Concomitant]
     Active Substance: VITAMINS
  4. LISINOPRIL. [Concomitant]
     Active Substance: LISINOPRIL
  5. ALLOPURINOL. [Concomitant]
     Active Substance: ALLOPURINOL
  6. GLUCOSAMINE [Concomitant]
     Active Substance: GLUCOSAMINE

REACTIONS (13)
  - Rhinorrhoea [Unknown]
  - Dizziness [Unknown]
  - Upper limb fracture [Unknown]
  - Muscle spasms [Unknown]
  - Feeling abnormal [Unknown]
  - Gastrointestinal disorder [Unknown]
  - Asthenia [Unknown]
  - Loss of consciousness [Unknown]
  - Hip fracture [Unknown]
  - Blood pressure increased [Unknown]
  - Orthostatic hypotension [Unknown]
  - Fall [Unknown]
  - Dizziness postural [Not Recovered/Not Resolved]

NARRATIVE: CASE EVENT DATE: 2015
